FAERS Safety Report 5574893-9 (Version None)
Quarter: 2007Q4

REPORT INFORMATION
  Report Type: 
  Country: None (occurrence: None)
  Receive Date: 20071227
  Receipt Date: 20071220
  Transmission Date: 20080405
  Serious: Yes (Other)
  Sender: FDA-Public Use
  Company Number: AU-JNJFOC-20071205441

PATIENT
  Sex: Male

DRUGS (4)
  1. CONCERTA [Suspect]
  2. CONCERTA [Suspect]
     Indication: DRUG USE FOR UNKNOWN INDICATION
  3. RISPERDAL [Suspect]
     Indication: AUTISM
  4. MOVOX [Concomitant]

REACTIONS (6)
  - FEAR [None]
  - HYPERAESTHESIA [None]
  - PARANOIA [None]
  - SOMNOLENCE [None]
  - TIC [None]
  - WEIGHT INCREASED [None]
